FAERS Safety Report 8472205-4 (Version None)
Quarter: 2012Q2

REPORT INFORMATION
  Report Type: 
  Country: None (occurrence: None)
  Receive Date: 20120627
  Receipt Date: 20120620
  Transmission Date: 20120825
  Serious: Yes (Hospitalization, Other)
  Sender: FDA-Public Use
  Company Number: US-JNJFOC-20100806498

PATIENT
  Sex: Female
  Weight: 100.7 kg

DRUGS (2)
  1. LEVAQUIN [Suspect]
     Indication: NASOPHARYNGITIS
     Route: 048
     Dates: start: 20080101, end: 20080101
  2. LEVAQUIN [Suspect]
     Route: 048

REACTIONS (3)
  - DEPRESSION [None]
  - FALL [None]
  - TENDON RUPTURE [None]
